FAERS Safety Report 4598699-2 (Version None)
Quarter: 2005Q1

REPORT INFORMATION
  Report Type: 
  Country: None (occurrence: None)
  Receive Date: 20050301
  Receipt Date: 20050301
  Transmission Date: 20050727
  Serious: Yes (Hospitalization)
  Sender: FDA-Public Use
  Company Number: None

PATIENT
  Age: 43 Year
  Sex: Female
  Weight: 57 kg

DRUGS (10)
  1. RITIXIMAB     375 MG/M2   GENETECH [Suspect]
     Indication: GRAFT VERSUS HOST DISEASE
     Dosage: 375 MG/M2  1/WEEK X4 INTRAVENOUS
     Route: 042
     Dates: start: 20040720, end: 20040810
  2. LIDOCAINE HCL VISCOUS [Concomitant]
  3. PREDNISONE [Concomitant]
  4. FOSAMAX [Concomitant]
  5. RAPAMUNE [Concomitant]
  6. AMITRIPTYLINE HCL [Concomitant]
  7. CELLCEPT [Concomitant]
  8. ACYCLOVIR [Concomitant]
  9. OXYCODONE HCL [Concomitant]
  10. LEXAPRO [Concomitant]

REACTIONS (7)
  - DISEASE PROGRESSION [None]
  - DRUG EFFECT DECREASED [None]
  - FLATULENCE [None]
  - GRAFT VERSUS HOST DISEASE [None]
  - NAUSEA [None]
  - PAIN [None]
  - VOMITING [None]
